FAERS Safety Report 12788300 (Version 1)
Quarter: 2016Q3

REPORT INFORMATION
  Report Type: Spontaneous
  Country: US (occurrence: US)
  Receive Date: 20160928
  Receipt Date: 20160928
  Transmission Date: 20161109
  Serious: No
  Sender: FDA-Public Use
  Company Number: US-PFIZER INC-2016447358

PATIENT
  Age: 60 Year

DRUGS (8)
  1. SOMA [Suspect]
     Active Substance: CARISOPRODOL
     Dosage: UNK
  2. TRAMADOL. [Suspect]
     Active Substance: TRAMADOL
     Dosage: UNK
  3. MORPHINE SULFATE. [Suspect]
     Active Substance: MORPHINE SULFATE
     Dosage: UNK
  4. METHOCARBAMOL. [Suspect]
     Active Substance: METHOCARBAMOL
     Dosage: UNK
  5. PREDNISONE. [Suspect]
     Active Substance: PREDNISONE
  6. CODEINE [Suspect]
     Active Substance: CODEINE
     Dosage: UNK
  7. SULFUR. [Suspect]
     Active Substance: SULFUR
     Dosage: UNK
  8. IV DYE [Suspect]
     Active Substance: UNSPECIFIED INGREDIENT

REACTIONS (1)
  - Drug hypersensitivity [Unknown]
